FAERS Safety Report 13740161 (Version 1)
Quarter: 2017Q3

REPORT INFORMATION
  Report Type: Spontaneous
  Country: US (occurrence: US)
  Receive Date: 20170710
  Receipt Date: 20170710
  Transmission Date: 20171127
  Serious: Yes (Disabling)
  Sender: FDA-Public Use
  Company Number: None

PATIENT
  Age: 37 Year
  Sex: Female
  Weight: 78.75 kg

DRUGS (6)
  1. LAMICTAL [Suspect]
     Active Substance: LAMOTRIGINE
     Indication: AFFECTIVE DISORDER
     Dosage: ?          OTHER STRENGTH:MG;QUANTITY:1 TABLET(S);?
     Route: 048
     Dates: start: 20170529, end: 20170710
  2. FOLIC ACID. [Concomitant]
     Active Substance: FOLIC ACID
  3. FISH OIL SUPPLEMENT [Concomitant]
     Active Substance: FISH OIL
  4. VITAMIN D [Concomitant]
     Active Substance: CHOLECALCIFEROL
  5. WELLBUTRIN [Concomitant]
     Active Substance: BUPROPION HYDROCHLORIDE
  6. TRADER JOE^S ONCE DAILY PRENATAL MULTI VITAMIN [Concomitant]

REACTIONS (9)
  - Migraine [None]
  - Myalgia [None]
  - Pain [None]
  - Paraesthesia [None]
  - Influenza like illness [None]
  - Depression [None]
  - Vertigo [None]
  - Somnolence [None]
  - Fatigue [None]

NARRATIVE: CASE EVENT DATE: 20170710
